FAERS Safety Report 5120887-7 (Version None)
Quarter: 2006Q4

REPORT INFORMATION
  Report Type: 
  Country: None (occurrence: None)
  Receive Date: 20061005
  Receipt Date: 20060807
  Transmission Date: 20070319
  Serious: Yes (Hospitalization)
  Sender: FDA-Public Use
  Company Number: PHHO2006CL12882

PATIENT
  Age: 53 Year
  Sex: Female

DRUGS (6)
  1. ZELMAC / HTF 919A [Suspect]
     Indication: IRRITABLE BOWEL SYNDROME
     Dosage: 6 MG, BID
     Route: 048
     Dates: start: 20060601
  2. EUTIROX [Concomitant]
     Indication: HYPOTHYROIDISM
  3. CLONAZEPAM [Concomitant]
     Indication: MAJOR DEPRESSION
  4. OMEPRAZOLE [Concomitant]
     Indication: IRRITABLE BOWEL SYNDROME
  5. PRIMAQUINE [Concomitant]
     Indication: HORMONE REPLACEMENT THERAPY
  6. REFLEXAN [Concomitant]

REACTIONS (2)
  - RECTOCELE [None]
  - RECTOCELE REPAIR [None]
